FAERS Safety Report 24750792 (Version 2)
Quarter: 2025Q3

REPORT INFORMATION
  Report Type: Spontaneous
  Country: EU (occurrence: EU)
  Receive Date: 20241218
  Receipt Date: 20250810
  Transmission Date: 20251021
  Serious: Yes (Hospitalization)
  Sender: ALEXION PHARMACEUTICALS
  Company Number: None

PATIENT
  Age: 90 Year
  Sex: Male
  Weight: 87 kg

DRUGS (17)
  1. CALQUENCE [Suspect]
     Active Substance: ACALABRUTINIB
     Dosage: 200 MILLIGRAM, QD
     Dates: start: 20241025, end: 20241119
  2. DUTASTERIDE [Concomitant]
     Active Substance: DUTASTERIDE
     Route: 065
  3. DUTASTERIDE [Concomitant]
     Active Substance: DUTASTERIDE
  4. HERBALS\SAW PALMETTO [Concomitant]
     Active Substance: HERBALS\SAW PALMETTO
     Route: 065
  5. HERBALS\SAW PALMETTO [Concomitant]
     Active Substance: HERBALS\SAW PALMETTO
  6. ALFUZOSIN [Concomitant]
     Active Substance: ALFUZOSIN
     Route: 065
  7. COVERAM [Concomitant]
     Active Substance: AMLODIPINE\PERINDOPRIL
     Route: 065
  8. COVERAM [Concomitant]
     Active Substance: AMLODIPINE\PERINDOPRIL
  9. PANTOPRAZOLE [Concomitant]
     Active Substance: PANTOPRAZOLE
     Route: 065
  10. PANTOPRAZOLE [Concomitant]
     Active Substance: PANTOPRAZOLE
  11. IXPRIM [Concomitant]
     Active Substance: ACETAMINOPHEN\TRAMADOL HYDROCHLORIDE
     Route: 065
  12. IXPRIM [Concomitant]
     Active Substance: ACETAMINOPHEN\TRAMADOL HYDROCHLORIDE
  13. TRAMADOL [Concomitant]
     Active Substance: TRAMADOL
     Route: 065
  14. GAVISCON [Concomitant]
     Active Substance: ALUMINUM HYDROXIDE\MAGNESIUM CARBONATE
     Route: 065
  15. GAVISCON [Concomitant]
     Active Substance: ALUMINUM HYDROXIDE\MAGNESIUM CARBONATE
  16. ENANTONE LP [Concomitant]
     Active Substance: LEUPROLIDE ACETATE
     Route: 065
  17. ENANTONE LP [Concomitant]
     Active Substance: LEUPROLIDE ACETATE

REACTIONS (2)
  - Urticaria [Recovered/Resolved]
  - Anaemia macrocytic [Not Recovered/Not Resolved]

NARRATIVE: CASE EVENT DATE: 20241118
